FAERS Safety Report 5020883-4 (Version None)
Quarter: 2006Q2

REPORT INFORMATION
  Report Type: 
  Country: None (occurrence: None)
  Receive Date: 20060606
  Receipt Date: 20060606
  Transmission Date: 20061013
  Serious: No
  Sender: FDA-Public Use
  Company Number: None

PATIENT
  Sex: Female

DRUGS (1)
  1. ULTRAM [Suspect]
     Indication: FIBROMYALGIA
     Dosage: TWO  Q 4-6 H PO #720
     Route: 048

REACTIONS (1)
  - DRUG INEFFECTIVE [None]
